FAERS Safety Report 9815793 (Version 3)
Quarter: 2014Q2

REPORT INFORMATION
  Report Type: Spontaneous
  Country: US (occurrence: US)
  Receive Date: 20140114
  Receipt Date: 20140606
  Transmission Date: 20141212
  Serious: Yes (Disabling, Other)
  Sender: FDA-Public Use
  Company Number: US-009507513-1401USA003071

PATIENT
  Age: 64 Year
  Sex: Male
  Weight: 98.41 kg

DRUGS (3)
  1. VICTRELIS [Suspect]
     Indication: HEPATITIS C
     Dosage: 800 MG, TID (4 DF), TOTAL DAILY DOSE 2400MG
     Route: 048
     Dates: start: 201309, end: 201401
  2. PEGINTRON [Suspect]
     Indication: HEPATITIS C
     Dosage: 150 MICROGRAM, QW, TOTAL DAILY DOSE 21.45 MICROGRAM
     Route: 058
     Dates: start: 201309, end: 201401
  3. REBETOL [Suspect]
     Indication: HEPATITIS C
     Dosage: UNK
     Route: 048
     Dates: start: 201309, end: 201401

REACTIONS (5)
  - Dermatitis infected [Recovered/Resolved]
  - Rash macular [Recovered/Resolved]
  - Rash generalised [Recovered/Resolved]
  - Urticaria [Recovered/Resolved]
  - Hepatitis C [Unknown]
